FAERS Safety Report 6229314-X (Version None)
Quarter: 2009Q2

REPORT INFORMATION
  Report Type: 
  Country: None (occurrence: None)
  Receive Date: 20090615
  Receipt Date: 20081216
  Transmission Date: 20091009
  Serious: Yes (Life-Threatening)
  Sender: FDA-Public Use
  Company Number: FR-AVENTIS-200814418FR

PATIENT
  Age: 47 Year
  Sex: Male

DRUGS (3)
  1. RIFADIN [Suspect]
     Route: 048
     Dates: start: 20080220, end: 20080414
  2. PANTOPRAZOLE SODIUM [Suspect]
     Route: 048
     Dates: start: 20080306, end: 20080414
  3. PEFLACINE                          /00772701/ [Suspect]
     Indication: BRAIN ABSCESS
     Route: 048
     Dates: start: 20080220, end: 20080414

REACTIONS (1)
  - NEUTROPENIA [None]
